FAERS Safety Report 9306002 (Version 4)
Quarter: 2013Q3

REPORT INFORMATION
  Report Type: Spontaneous
  Country: US (occurrence: US)
  Receive Date: 20130523
  Receipt Date: 20130716
  Transmission Date: 20140515
  Serious: No
  Sender: FDA-Public Use
  Company Number: US-PFIZER INC-2013157113

PATIENT
  Age: 71 Year
  Sex: Female
  Weight: 71.2 kg

DRUGS (9)
  1. XELJANZ [Suspect]
     Indication: RHEUMATOID ARTHRITIS
     Dosage: 5 MG, 2X/DAY
     Route: 048
     Dates: start: 20130425
  2. PRAVASTATIN [Concomitant]
     Indication: BONE DISORDER
     Dosage: UNSPECIFIED SHOT EVERY MONTH
  3. HYDROCHLOROTHIAZIDE [Concomitant]
     Dosage: UNK
  4. LEVOTHYROXINE [Concomitant]
     Dosage: UNK
  5. ESTER-C [Concomitant]
     Dosage: UNK
  6. CALCIUM [Concomitant]
     Dosage: UNK
  7. POTASSIUM [Concomitant]
     Dosage: UNK
  8. MEGA RED KRILL OIL [Concomitant]
     Dosage: UNK
  9. FLAX SEED [Concomitant]
     Dosage: UNK

REACTIONS (6)
  - Arthralgia [Recovering/Resolving]
  - Back pain [Unknown]
  - Pain in extremity [Recovered/Resolved]
  - Local swelling [Recovered/Resolved]
  - Gait disturbance [Unknown]
  - Drug effect incomplete [Unknown]
